FAERS Safety Report 9240600 (Version 1)
Quarter: 2013Q1

REPORT INFORMATION
  Report Type: Spontaneous
  Country: US (occurrence: None)
  Receive Date: 20121120
  Receipt Date: 20121120
  Transmission Date: 20140127
  Serious: No
  Sender: FDA-Public Use
  Company Number: 1000037724

PATIENT
  Age: 41 Year
  Sex: Female

DRUGS (4)
  1. VIIBRYD [Suspect]
     Indication: DEPRESSION
     Dates: start: 20120725, end: 20120731
  2. LAMICTAL [Concomitant]
  3. WELLBUTRIN (BUPROPION HYDROCHLORIDE) [Concomitant]
  4. BIRTH CONTROL (NOS) (BIRTH CONTROL (NOS) ) [Concomitant]

REACTIONS (6)
  - Abdominal pain upper [None]
  - Diarrhoea [None]
  - Crying [None]
  - Thinking abnormal [None]
  - Anxiety [None]
  - Drug ineffective [None]
